FAERS Safety Report 5161471-9 (Version None)
Quarter: 2006Q4

REPORT INFORMATION
  Report Type: 
  Country: None (occurrence: None)
  Receive Date: 20061130
  Receipt Date: 20060816
  Transmission Date: 20070319
  Serious: Yes (Hospitalization, Disabling)
  Sender: FDA-Public Use
  Company Number: US-GLAXOSMITHKLINE-A0616950A

PATIENT
  Age: 41 Year
  Sex: Female
  Weight: 118.6 kg

DRUGS (3)
  1. WELLBUTRIN [Suspect]
     Indication: DEPRESSION
     Dosage: 300MG PER DAY
     Route: 048
     Dates: start: 20060724, end: 20060729
  2. LOTENSIN HCT [Concomitant]
     Indication: HYPERTENSION
     Route: 048
  3. ADDERALL 10 [Concomitant]
     Dosage: 30MG PER DAY
     Route: 048
     Dates: start: 20060619

REACTIONS (1)
  - ERYTHEMA MULTIFORME [None]
